FAERS Safety Report 4349234-5 (Version None)
Quarter: 2004Q2

REPORT INFORMATION
  Report Type: 
  Country: None (occurrence: None)
  Receive Date: 20040428
  Receipt Date: 20031118
  Transmission Date: 20050107
  Serious: Yes (Hospitalization, Disabling, Other)
  Sender: FDA-Public Use
  Company Number: US-MERCK-0311USA02115

PATIENT
  Age: 51 Year
  Sex: Male
  Weight: 109 kg

DRUGS (6)
  1. FLEXERIL [Concomitant]
     Route: 065
  2. MONOPRIL [Concomitant]
     Indication: HYPERTENSION
     Route: 065
  3. PRAVACHOL [Concomitant]
     Indication: HYPERCHOLESTEROLAEMIA
     Route: 065
     Dates: end: 20021122
  4. VIOXX [Suspect]
     Indication: SCIATICA
     Route: 048
     Dates: start: 20020109
  5. VIOXX [Suspect]
     Route: 048
     Dates: start: 20020101, end: 20020128
  6. VIOXX [Suspect]
     Route: 065
     Dates: start: 20020109, end: 20020109

REACTIONS (15)
  - ACUTE MYOCARDIAL INFARCTION [None]
  - BODY TINEA [None]
  - CARPAL TUNNEL SYNDROME [None]
  - CORONARY ARTERY ATHEROSCLEROSIS [None]
  - DERMOID CYST [None]
  - DIABETES MELLITUS NON-INSULIN-DEPENDENT [None]
  - EMOTIONAL DISTRESS [None]
  - FATIGUE [None]
  - HYPERSENSITIVITY [None]
  - OVERDOSE [None]
  - PAIN IN EXTREMITY [None]
  - TENDONITIS [None]
  - TENOSYNOVITIS [None]
  - TRIGGER FINGER [None]
  - WEIGHT INCREASED [None]
